FAERS Safety Report 9732258 (Version 1)
Quarter: 2013Q4

REPORT INFORMATION
  Report Type: Spontaneous
  Country: US (occurrence: None)
  Receive Date: 20131204
  Receipt Date: 20131204
  Transmission Date: 20140711
  Serious: No
  Sender: FDA-Public Use
  Company Number: None

PATIENT
  Sex: Female

DRUGS (1)
  1. EXJADE [Suspect]
     Indication: IRON METABOLISM DISORDER
     Dosage: EXJADE 250MG, 3 TABLETS IN 3.5 OUNCES OF WATER
     Dates: start: 20101209

REACTIONS (2)
  - Visual acuity reduced [None]
  - Treatment noncompliance [None]
